FAERS Safety Report 9483942 (Version 2)
Quarter: 2013Q3

REPORT INFORMATION
  Report Type: Spontaneous
  Country: CA (occurrence: CA)
  Receive Date: 20130828
  Receipt Date: 20130828
  Transmission Date: 20140515
  Serious: Yes (Other)
  Sender: FDA-Public Use
  Company Number: CA-AMGEN-KDL336170

PATIENT
  Age: 51 Year
  Sex: Male
  Weight: 75 kg

DRUGS (1)
  1. ENBREL [Suspect]
     Indication: ANKYLOSING SPONDYLITIS
     Dosage: UNK UNK, 2 TIMES/WK
     Route: 065
     Dates: start: 20011211, end: 20090625

REACTIONS (4)
  - Blindness [Unknown]
  - Uveitis [Unknown]
  - Eye inflammation [Not Recovered/Not Resolved]
  - Urinary tract infection [Recovering/Resolving]
